FAERS Safety Report 14338947 (Version 1)
Quarter: 2017Q4

REPORT INFORMATION
  Report Type: Spontaneous
  Country: CA (occurrence: CA)
  Receive Date: 20171229
  Receipt Date: 20171229
  Transmission Date: 20180321
  Serious: Yes (Other)
  Sender: FDA-Public Use
  Company Number: CA-BAXTER-2017BAX044862

PATIENT
  Age: 42 Year
  Sex: Male

DRUGS (8)
  1. APO-DEXAMETHASONE [Suspect]
     Active Substance: DEXAMETHASONE
     Indication: POEMS SYNDROME
     Dosage: DOSAGE FORM: TABLET
     Route: 065
  2. APO-PREDNISONE [Suspect]
     Active Substance: PREDNISONE
     Indication: POEMS SYNDROME
     Dosage: DOSAGE FORM: TABLET
     Route: 065
  3. APO-DEXAMETHASONE [Suspect]
     Active Substance: DEXAMETHASONE
     Indication: CHEMOTHERAPY
     Dosage: DOSAGE FORM: TABLET
     Route: 065
  4. APO-PREDNISONE [Suspect]
     Active Substance: PREDNISONE
     Indication: CHEMOTHERAPY
     Dosage: DOSAGE FORM: TABLET
     Route: 065
  5. MELPHALAN. [Suspect]
     Active Substance: MELPHALAN
     Indication: POEMS SYNDROME
     Dosage: DOSAGE FORM: NOT SPECIFIED
     Route: 065
  6. MELPHALAN. [Suspect]
     Active Substance: MELPHALAN
     Indication: CHEMOTHERAPY
  7. PROCYTOX (CYCLOPHOSPHAMIDE) 2000MG/VIAL [Suspect]
     Active Substance: CYCLOPHOSPHAMIDE
     Indication: POEMS SYNDROME
     Dosage: DOSAGE FORM: NOT SPECIFIED
     Route: 065
  8. PROCYTOX (CYCLOPHOSPHAMIDE) 2000MG/VIAL [Suspect]
     Active Substance: CYCLOPHOSPHAMIDE
     Indication: CHEMOTHERAPY

REACTIONS (3)
  - Therapy non-responder [Recovered/Resolved]
  - POEMS syndrome [Recovered/Resolved]
  - Condition aggravated [Recovered/Resolved]
